FAERS Safety Report 10188354 (Version 1)
Quarter: 2014Q2

REPORT INFORMATION
  Report Type: Spontaneous
  Country: BR (occurrence: BR)
  Receive Date: 20140522
  Receipt Date: 20140522
  Transmission Date: 20141212
  Serious: Yes (Other)
  Sender: FDA-Public Use
  Company Number: BR-SA-2014SA063315

PATIENT
  Age: 38 Year
  Sex: Female

DRUGS (7)
  1. ALLEGRA [Suspect]
     Indication: SINUSITIS
     Dosage: FREQUENCY: ONCE A DAY BUT IN EPISODES 12 HOURLY
     Route: 048
  2. DORFLEX [Suspect]
     Indication: HEADACHE
     Route: 065
  3. DUSPATALIN [Concomitant]
     Indication: IRRITABLE BOWEL SYNDROME
     Route: 048
  4. OMEPRAZOLE [Concomitant]
     Indication: GASTROINTESTINAL DISORDER
     Dosage: FREQUENCY:2 TIMES A DAY (USES FROM TIME TO TIME, WHEN REQUIRED, HAD BEEN USING IT FOR 3 YEARS)
     Route: 048
  5. TYLENOL SINUS [Concomitant]
     Indication: HYPERSENSITIVITY
     Route: 048
  6. PREDNISONE [Concomitant]
     Indication: HYPERSENSITIVITY
     Dosage: DOSE:40 MG ONCE PER DAY OR 20 MG TWICE PER DAY
     Route: 048
  7. NASONEX [Concomitant]
     Indication: HYPERSENSITIVITY
     Dosage: FREQUENCY:ONCE A DAY OR IN EPISODES TWICE A DAY
     Route: 045

REACTIONS (2)
  - Coeliac disease [Not Recovered/Not Resolved]
  - Duodenitis [Not Recovered/Not Resolved]
